FAERS Safety Report 24811624 (Version 2)
Quarter: 2025Q3

REPORT INFORMATION
  Report Type: Report from Study
  Country: CA (occurrence: CA)
  Receive Date: 20250106
  Receipt Date: 20250809
  Transmission Date: 20251021
  Serious: Yes (Hospitalization, Other)
  Sender: ALEXION PHARMACEUTICALS
  Company Number: CA-AstraZeneca-CH-00746548A

PATIENT
  Age: 51 Year
  Sex: Female

DRUGS (3)
  1. OLAPARIB [Suspect]
     Active Substance: OLAPARIB
     Indication: Breast cancer metastatic
     Dosage: 300 MILLIGRAM, BID
     Dates: start: 20240613, end: 20241030
  2. OLAPARIB [Suspect]
     Active Substance: OLAPARIB
  3. SYNTHROID [Concomitant]
     Active Substance: LEVOTHYROXINE SODIUM
     Route: 065

REACTIONS (3)
  - Lymphoma [Unknown]
  - Fallopian tube disorder [Unknown]
  - Ovarian disorder [Unknown]

NARRATIVE: CASE EVENT DATE: 20241006
